FAERS Safety Report 11631771 (Version 1)
Quarter: 2015Q4

REPORT INFORMATION
  Report Type: Spontaneous
  Country: US (occurrence: US)
  Receive Date: 20151015
  Receipt Date: 20151015
  Transmission Date: 20160304
  Serious: No
  Sender: FDA-Public Use
  Company Number: US-009507513-1509USA014023

PATIENT
  Age: 36 Year
  Sex: Male

DRUGS (1)
  1. NASONEX [Suspect]
     Active Substance: MOMETASONE FUROATE
     Indication: NASAL POLYPS
     Dosage: UNK, BID
     Route: 045

REACTIONS (2)
  - Drug dose omission [Unknown]
  - Nasal congestion [Unknown]

NARRATIVE: CASE EVENT DATE: 201509
